FAERS Safety Report 8968187 (Version 1)
Quarter: 2012Q4

REPORT INFORMATION
  Report Type: Spontaneous
  Country: US (occurrence: None)
  Receive Date: 20121214
  Receipt Date: 20121214
  Transmission Date: 20130627
  Serious: Yes (Other)
  Sender: FDA-Public Use
  Company Number: None

PATIENT
  Age: 56 Year
  Sex: Female
  Weight: 81.8 kg

DRUGS (2)
  1. MONTELUKAST [Suspect]
     Indication: MULTIPLE ALLERGIES
     Dosage: 9/01/2012 - Present
     Dates: start: 20120901
  2. MONTELUKAST [Suspect]
     Indication: ASTHMA
     Dosage: 9/01/2012 - Present
     Dates: start: 20120901

REACTIONS (5)
  - Cough [None]
  - Drug ineffective [None]
  - Product substitution issue [None]
  - Sinus congestion [None]
  - Sinus headache [None]
